FAERS Safety Report 8403057-6 (Version None)
Quarter: 2012Q2

REPORT INFORMATION
  Report Type: 
  Country: None (occurrence: None)
  Receive Date: 20120601
  Receipt Date: 20120522
  Transmission Date: 20120825
  Serious: Yes (Death, Hospitalization, Other)
  Sender: FDA-Public Use
  Company Number: DE-ELI_LILLY_AND_COMPANY-DE201205007289

PATIENT
  Sex: Male

DRUGS (2)
  1. VITAMIN D [Concomitant]
  2. FORTEO [Suspect]
     Indication: OSTEOPOROSIS
     Dosage: UNK, QD
     Route: 058
     Dates: start: 20110303

REACTIONS (9)
  - CHEST DISCOMFORT [None]
  - CARDIOVASCULAR DISORDER [None]
  - MOVEMENT DISORDER [None]
  - MEDICAL INDUCTION OF COMA [None]
  - VIRAL INFECTION [None]
  - CHEST PAIN [None]
  - PNEUMOTHORAX [None]
  - RENAL FAILURE [None]
  - DEATH [None]
